FAERS Safety Report 6242702-0 (Version None)
Quarter: 2009Q2

REPORT INFORMATION
  Report Type: 
  Country: None (occurrence: None)
  Receive Date: 20090624
  Receipt Date: 20090617
  Transmission Date: 20091009
  Serious: Yes (Death, Life-Threatening, Hospitalization, Other)
  Sender: FDA-Public Use
  Company Number: PHHY2009BR24189

PATIENT
  Sex: Male
  Weight: 87 kg

DRUGS (4)
  1. DIOVAN [Suspect]
     Indication: HYPERTENSION
     Dosage: 2 DF DAILY
  2. CAPTOPRIL [Concomitant]
  3. VITAMIN B-12 [Concomitant]
  4. ANALGESICS [Concomitant]

REACTIONS (11)
  - ANEURYSM [None]
  - APPARENT LIFE THREATENING EVENT [None]
  - CEREBROVASCULAR ACCIDENT [None]
  - COMA [None]
  - DYSSTASIA [None]
  - FREQUENT BOWEL MOVEMENTS [None]
  - HYPERHIDROSIS [None]
  - PANIC ATTACK [None]
  - POLLAKIURIA [None]
  - VOMITING [None]
  - WEIGHT DECREASED [None]
